FAERS Safety Report 9781230 (Version 1)
Quarter: 2013Q4

REPORT INFORMATION
  Report Type: Spontaneous
  Country: US (occurrence: US)
  Receive Date: 20131224
  Receipt Date: 20131224
  Transmission Date: 20140711
  Serious: Yes (Hospitalization)
  Sender: FDA-Public Use
  Company Number: PHHY2013US150198

PATIENT
  Age: 8 Month
  Sex: Male

DRUGS (3)
  1. PARACETAMOL [Suspect]
     Indication: PROCEDURAL PAIN
     Dosage: 325 MG, LOADING DOSE
     Route: 054
  2. PARACETAMOL [Suspect]
     Dosage: 134 MG,
     Route: 048
  3. PARACETAMOL [Suspect]
     Dosage: 1 MG, (80MG/0.8ML)-AS NEEDED FOR PAIN EVERY 4-6 HOURS
     Route: 048

REACTIONS (13)
  - Acute hepatic failure [Recovering/Resolving]
  - Haemorrhage [Recovering/Resolving]
  - Vomiting [Recovering/Resolving]
  - Hepatic enzyme abnormal [Recovering/Resolving]
  - Lethargy [Recovering/Resolving]
  - Urine output decreased [Recovering/Resolving]
  - Hepatomegaly [Recovering/Resolving]
  - Metabolic acidosis [Recovering/Resolving]
  - Altered state of consciousness [Recovering/Resolving]
  - Grand mal convulsion [Recovering/Resolving]
  - Decreased appetite [Recovering/Resolving]
  - Hepatic encephalopathy [Recovering/Resolving]
  - Drug-induced liver injury [Recovering/Resolving]
